FAERS Safety Report 7718959-3 (Version None)
Quarter: 2011Q3

REPORT INFORMATION
  Report Type: 
  Country: None (occurrence: None)
  Receive Date: 20110830
  Receipt Date: 20110427
  Transmission Date: 20111222
  Serious: Yes (Hospitalization)
  Sender: FDA-Public Use
  Company Number: US-GLAXOSMITHKLINE-A0925621A

PATIENT
  Age: 61 Year
  Sex: Male

DRUGS (1)
  1. AVANDIA [Suspect]
     Indication: DIABETES MELLITUS
     Dosage: 4MG PER DAY
     Route: 048
     Dates: start: 20080327, end: 20080528

REACTIONS (4)
  - CATHETERISATION CARDIAC [None]
  - ARTERIAL OCCLUSIVE DISEASE [None]
  - CORONARY ARTERIAL STENT INSERTION [None]
  - PAIN [None]
